FAERS Safety Report 6942647-4 (Version None)
Quarter: 2010Q3

REPORT INFORMATION
  Report Type: 
  Country: None (occurrence: None)
  Receive Date: 20100826
  Receipt Date: 20100820
  Transmission Date: 20110219
  Serious: Yes (Other)
  Sender: FDA-Public Use
  Company Number: US-SANOFI-AVENTIS-2010SA050187

PATIENT
  Sex: Female
  Weight: 98.88 kg

DRUGS (1)
  1. LANTUS [Suspect]
     Route: 058

REACTIONS (6)
  - ANGIOEDEMA [None]
  - CHEST DISCOMFORT [None]
  - DYSPNOEA [None]
  - EYE SWELLING [None]
  - RASH [None]
  - THROAT TIGHTNESS [None]
